FAERS Safety Report 6053944-1 (Version None)
Quarter: 2009Q1

REPORT INFORMATION
  Report Type: 
  Country: None (occurrence: None)
  Receive Date: 20090127
  Receipt Date: 20090116
  Transmission Date: 20090719
  Serious: Yes (Hospitalization)
  Sender: FDA-Public Use
  Company Number: US-ROCHE-609736

PATIENT
  Age: 14 Year
  Sex: Female

DRUGS (6)
  1. CELLCEPT [Suspect]
     Indication: DRUG USE FOR UNKNOWN INDICATION
     Route: 065
  2. PREDNISONE [Concomitant]
  3. SODIUM BICARBONATE [Concomitant]
  4. NITROFURANTOIN [Concomitant]
  5. PROGRAF [Concomitant]
  6. AMOXICILLIN + CLAVULANATE POTASSIUM [Concomitant]
     Dosage: DRUG REPORTED: AMOX-CLAU

REACTIONS (1)
  - KIDNEY TRANSPLANT REJECTION [None]
